FAERS Safety Report 5066435-1 (Version None)
Quarter: 2006Q3

REPORT INFORMATION
  Report Type: 
  Country: None (occurrence: None)
  Receive Date: 20060801
  Receipt Date: 20060720
  Transmission Date: 20061208
  Serious: Yes (Other)
  Sender: FDA-Public Use
  Company Number: US-JNJFOC-20060700466

PATIENT
  Sex: Female
  Weight: 58.06 kg

DRUGS (14)
  1. REMICADE [Suspect]
     Route: 042
  2. REMICADE [Suspect]
     Indication: RHEUMATOID ARTHRITIS
     Route: 042
  3. FOLATE [Concomitant]
  4. BEXTRA [Concomitant]
  5. PREDNISONE [Concomitant]
  6. METHOTREXATE [Concomitant]
  7. CELEBREX [Concomitant]
  8. PRILOSEC [Concomitant]
  9. NEXIUM [Concomitant]
  10. ACETAMINOPHEN [Concomitant]
  11. COUMADIN [Concomitant]
  12. VICODEN [Concomitant]
  13. CALCIUM GLUCONATE [Concomitant]
  14. LOTENSIN [Concomitant]

REACTIONS (1)
  - B-CELL LYMPHOMA STAGE I [None]
